FAERS Safety Report 10558672 (Version 4)
Quarter: 2015Q4

REPORT INFORMATION
  Report Type: Report from Study
  Country: JP (occurrence: JP)
  Receive Date: 20141031
  Receipt Date: 20151022
  Transmission Date: 20160304
  Serious: Yes (Other)
  Sender: FDA-Public Use
  Company Number: JP-009507513-1304JPN001208

PATIENT
  Age: 4 Month
  Sex: Female

DRUGS (14)
  1. KEFRAL [Concomitant]
     Active Substance: CEFACLOR
     Indication: PERSISTENT CLOACA
     Dosage: 15 MG, QD; DIVIDED DOSE FREQUENCY UNKNOWN
     Route: 048
     Dates: start: 20121123, end: 20140318
  2. GASTER [Concomitant]
     Active Substance: FAMOTIDINE
     Indication: OESOPHAGEAL ATRESIA
     Dosage: 3 MG, QD; DIVIDED DOSE FREQUENCY UNKNOWN
     Route: 048
     Dates: start: 20121123
  3. GASTER [Concomitant]
     Active Substance: FAMOTIDINE
     Dosage: 5 MG, QD; DIVIDED DOSE FREQUENCY UNKNOWN
     Route: 048
  4. CERCINE [Concomitant]
     Active Substance: DIAZEPAM
     Dosage: 5 ML, TID; FORMULATION: POR
     Route: 048
  5. SOLU-CORTEF [Concomitant]
     Active Substance: HYDROCORTISONE SODIUM SUCCINATE
     Indication: HYPOGLYCAEMIA
     Dosage: 20 MG, QD, DIVIDED DOSE FREQUENCY UNKNOWN
     Route: 042
     Dates: start: 20130311, end: 20130311
  6. ALDACTONE A [Concomitant]
     Active Substance: SPIRONOLACTONE
     Indication: ANOMALOUS PULMONARY VENOUS CONNECTION
     Dosage: 2 MG, QD, DIVIDED DOSE FREQUENCY UNKNOWN, FORMULATION: POR
     Route: 048
     Dates: start: 20121125, end: 20131210
  7. MIYA-BM [Concomitant]
     Active Substance: CLOSTRIDIUM BUTYRICUM SPORES STRAIN M-55
     Dosage: 1 G, QD, DIVIDED DOSE FREQUENCY UNKNOWN, FORMULATION: POR
     Route: 048
  8. KEFRAL [Concomitant]
     Active Substance: CEFACLOR
     Indication: URINARY TRACT INFECTION
     Dosage: 50 MG, QD; DIVIDED DOSE FREQUENCY UNKNOWN
     Route: 048
     Dates: end: 20140321
  9. MIYA-BM [Concomitant]
     Active Substance: CLOSTRIDIUM BUTYRICUM SPORES STRAIN M-55
     Indication: ANAL ATRESIA
     Dosage: 0.3 G, QD, DIVIDED DOSE FREQUENCY UNKNOWN, FORMULATION: POR
     Route: 048
     Dates: start: 20121214
  10. DIAZOXIDE [Suspect]
     Active Substance: DIAZOXIDE
     Indication: HYPOGLYCAEMIA
     Dosage: 24 MG, BID
     Route: 048
     Dates: start: 20130313, end: 20130318
  11. DIAZOXIDE [Suspect]
     Active Substance: DIAZOXIDE
     Dosage: 50 MG, BID
     Route: 048
     Dates: start: 20130319, end: 20130322
  12. REVATIO [Concomitant]
     Active Substance: SILDENAFIL CITRATE
     Indication: ANOMALOUS PULMONARY VENOUS CONNECTION
     Dosage: 6 MG, QD; DIVIDED DOSE FREQUENCY UNKNOWN, FORMULATION: POR
     Route: 048
     Dates: end: 20140704
  13. LASIX [Concomitant]
     Active Substance: FUROSEMIDE
     Indication: ANOMALOUS PULMONARY VENOUS CONNECTION
     Dosage: 2 MG, QD, DIVIDED DOSE FREQUENCY UNKNOWN, FORMULATIION: POR
     Route: 048
     Dates: start: 20121125, end: 20131210
  14. MIYA-BM [Concomitant]
     Active Substance: CLOSTRIDIUM BUTYRICUM SPORES STRAIN M-55
     Dosage: 0.5 G, QD; DEVIDED DOSE FREQUENCY UNKNOWN, FORMULATION: POR
     Route: 048

REACTIONS (1)
  - Oedema [Recovered/Resolved]

NARRATIVE: CASE EVENT DATE: 20130320
